FAERS Safety Report 5402696-4 (Version None)
Quarter: 2007Q3

REPORT INFORMATION
  Report Type: 
  Country: None (occurrence: None)
  Receive Date: 20070801
  Receipt Date: 20070727
  Transmission Date: 20080115
  Serious: Yes (Hospitalization)
  Sender: FDA-Public Use
  Company Number: B0479908A

PATIENT
  Age: 58 Year
  Sex: Female
  Weight: 36 kg

DRUGS (7)
  1. ZEFIX [Suspect]
     Indication: HEPATIC CIRRHOSIS
     Dosage: 100MG PER DAY
     Route: 048
     Dates: start: 20040713
  2. HEPSERA [Suspect]
     Indication: HEPATIC CIRRHOSIS
     Dosage: 10MG PER DAY
     Route: 048
     Dates: start: 20051203
  3. FAMOTIDINE [Concomitant]
     Route: 048
  4. MUCOSTA [Concomitant]
     Route: 048
  5. URSO 250 [Concomitant]
     Indication: HEPATIC CIRRHOSIS
     Route: 048
  6. OMEPRAZOLE [Concomitant]
     Indication: HEPATIC CIRRHOSIS
     Route: 048
  7. LIVACT [Concomitant]
     Indication: HEPATIC CIRRHOSIS
     Route: 048

REACTIONS (1)
  - OSTEOMALACIA [None]
